FAERS Safety Report 5209132-1 (Version None)
Quarter: 2007Q1

REPORT INFORMATION
  Report Type: 
  Country: None (occurrence: None)
  Receive Date: 20070116
  Receipt Date: 20070104
  Transmission Date: 20070707
  Serious: Yes (Other)
  Sender: FDA-Public Use
  Company Number: US-ROCHE-475146

PATIENT
  Age: 16 Year
  Sex: Female
  Weight: 93 kg

DRUGS (2)
  1. ACCUTANE [Suspect]
     Indication: ACNE
     Dosage: REGIMEN #2
     Route: 065
     Dates: start: 20060315, end: 20061211
  2. ACCUTANE [Suspect]
     Dosage: REGIMEN #1
     Route: 065
     Dates: start: 20040704, end: 20060315

REACTIONS (4)
  - ABNORMAL BEHAVIOUR [None]
  - ANGER [None]
  - MOOD ALTERED [None]
  - SELF INJURIOUS BEHAVIOUR [None]
